FAERS Safety Report 6466398-8 (Version None)
Quarter: 2009Q4

REPORT INFORMATION
  Report Type: 
  Country: None (occurrence: None)
  Receive Date: 20091202
  Receipt Date: 20091124
  Transmission Date: 20100525
  Serious: Yes (Life-Threatening)
  Sender: FDA-Public Use
  Company Number: IT-AMGEN-QUU372202

PATIENT
  Sex: Female

DRUGS (3)
  1. ARANESP [Suspect]
     Indication: DIALYSIS
     Route: 042
     Dates: start: 20070101, end: 20091002
  2. MYCOPHENOLATE MOFETIL [Concomitant]
     Dates: end: 20031027
  3. TACROLIMUS [Concomitant]
     Dates: start: 20031020

REACTIONS (1)
  - APLASIA PURE RED CELL [None]
